FAERS Safety Report 4663692-8 (Version None)
Quarter: 2005Q2

REPORT INFORMATION
  Report Type: 
  Country: None (occurrence: None)
  Receive Date: 20050517
  Receipt Date: 20050510
  Transmission Date: 20051028
  Serious: Yes (Death)
  Sender: FDA-Public Use
  Company Number: 05-05-0813

PATIENT
  Age: 96 Year
  Sex: Male

DRUGS (1)
  1. CLOZAPINE [Suspect]
     Indication: BIPOLAR DISORDER
     Dosage: 25-50MG QD ORAL
     Route: 048
     Dates: start: 20020601, end: 20050401

REACTIONS (1)
  - NO ADVERSE EFFECT [None]
